FAERS Safety Report 10504989 (Version 1)
Quarter: 2014Q4

REPORT INFORMATION
  Report Type: Spontaneous
  Country: JP (occurrence: JP)
  Receive Date: 20141008
  Receipt Date: 20141008
  Transmission Date: 20150528
  Serious: Yes (Life-Threatening, Other)
  Sender: FDA-Public Use
  Company Number: JP-ASTRAZENECA-2014SE75083

PATIENT
  Age: 41 Year
  Sex: Female

DRUGS (4)
  1. SEROQUEL [Suspect]
     Active Substance: QUETIAPINE FUMARATE
     Indication: SUICIDE ATTEMPT
     Dosage: 4000 MG, ONCE DAILY
     Route: 048
     Dates: start: 20140927
  2. TWO PSYCHONEUROTIC AGENTS [Concomitant]
     Dosage: 20 AND 10 TABLETS, RESPECTIVELY
  3. HYPNOSEDATIVE/ANTI-ANXIETY AGENTS [Concomitant]
     Dosage: 20 CAPSULES
  4. ANTIDEPRESSANT AGENTS [Concomitant]
     Dosage: 20 TABLETS

REACTIONS (3)
  - Intentional overdose [Unknown]
  - Suicide attempt [Unknown]
  - Altered state of consciousness [Unknown]

NARRATIVE: CASE EVENT DATE: 20140927
